FAERS Safety Report 4752669-X (Version None)
Quarter: 2005Q3

REPORT INFORMATION
  Report Type: 
  Country: None (occurrence: None)
  Receive Date: 20050824
  Receipt Date: 20050822
  Transmission Date: 20060218
  Serious: Yes (Death)
  Sender: FDA-Public Use
  Company Number: 2005S1000130

PATIENT

DRUGS (1)
  1. CUBICIN [Suspect]
     Indication: BACTERIAL INFECTION

REACTIONS (1)
  - DEATH [None]
